FAERS Safety Report 20702285 (Version 1)
Quarter: 2022Q2

REPORT INFORMATION
  Report Type: Spontaneous
  Country: US (occurrence: None)
  Receive Date: 20220411
  Receipt Date: 20220411
  Transmission Date: 20220721
  Serious: Yes (Other)
  Sender: FDA-Public Use
  Company Number: None

PATIENT
  Age: 54 Year
  Sex: Female
  Weight: 94.95 kg

DRUGS (3)
  1. PEG 3350 [Suspect]
     Active Substance: POLYETHYLENE GLYCOL 3350
     Indication: Bowel preparation
     Dosage: OTHER QUANTITY : 4000 GALLON?
     Route: 048
     Dates: start: 20220401, end: 20220402
  2. Zinc supplements [Concomitant]
  3. VITAMIN B12 [Concomitant]
     Active Substance: CYANOCOBALAMIN

REACTIONS (8)
  - Rash [None]
  - Pruritus [None]
  - Myalgia [None]
  - Haematochezia [None]
  - Vulvovaginal pruritus [None]
  - Back pain [None]
  - Chest pain [None]
  - Pruritus [None]

NARRATIVE: CASE EVENT DATE: 20220402
